FAERS Safety Report 10559575 (Version 1)
Quarter: 2014Q4

REPORT INFORMATION
  Report Type: Spontaneous
  Country: US (occurrence: None)
  Receive Date: 20141031
  Receipt Date: 20141031
  Transmission Date: 20150529
  Serious: No
  Sender: FDA-Public Use
  Company Number: None

PATIENT
  Age: 32 Year
  Sex: Female

DRUGS (1)
  1. CAPECITABINE 500MG TAB MYLAN PHARMACEUTICALS INC. [Suspect]
     Active Substance: CAPECITABINE
     Indication: RECTOSIGMOID CANCER
     Route: 048
     Dates: start: 20140529

REACTIONS (1)
  - Limb discomfort [None]

NARRATIVE: CASE EVENT DATE: 20141007
